FAERS Safety Report 13267091 (Version 3)
Quarter: 2018Q2

REPORT INFORMATION
  Report Type: Report from Study
  Country: US (occurrence: US)
  Receive Date: 20170224
  Receipt Date: 20180605
  Transmission Date: 20180711
  Serious: No
  Sender: FDA-Public Use
  Company Number: PHEH2017US005485

PATIENT
  Sex: Female

DRUGS (1)
  1. AFINITOR [Suspect]
     Active Substance: EVEROLIMUS
     Indication: ASTROCYTOMA, LOW GRADE
     Dosage: 30 MG, QW (ONCE A WEEK)
     Route: 048
     Dates: start: 20120308

REACTIONS (5)
  - Skin hypertrophy [Not Recovered/Not Resolved]
  - Malaise [Unknown]
  - Blood pressure increased [Unknown]
  - Dry skin [Unknown]
  - Blood cholesterol increased [Not Recovered/Not Resolved]
